FAERS Safety Report 5949876-7 (Version None)
Quarter: 2008Q4

REPORT INFORMATION
  Report Type: 
  Country: None (occurrence: None)
  Receive Date: 20081112
  Receipt Date: 20081107
  Transmission Date: 20090506
  Serious: Yes (Other)
  Sender: FDA-Public Use
  Company Number: US-ASTRAZENECA-2008UW25064

PATIENT
  Age: 68 Year
  Sex: Male

DRUGS (1)
  1. CRESTOR [Suspect]
     Dosage: 5 MG TAKEN A COUPLE OF TIMES A WEEK
     Route: 048

REACTIONS (2)
  - DIPLOPIA [None]
  - EXTRAOCULAR MUSCLE PARESIS [None]
